FAERS Safety Report 19170750 (Version 1)
Quarter: 2021Q2

REPORT INFORMATION
  Report Type: Spontaneous
  Country: FR (occurrence: FR)
  Receive Date: 20210422
  Receipt Date: 20210422
  Transmission Date: 20210717
  Serious: Yes (Other)
  Sender: FDA-Public Use
  Company Number: FR-PFIZER INC-2021448733

PATIENT
  Age: 57 Year
  Sex: Female

DRUGS (3)
  1. OXALIPLATIN. [Suspect]
     Active Substance: OXALIPLATIN
     Indication: ADENOCARCINOMA
     Dosage: UNK UNK, CYCLIC
     Dates: start: 2019
  2. FLUOROURACIL. [Concomitant]
     Active Substance: FLUOROURACIL
     Indication: ADENOCARCINOMA
     Dosage: UNK UNK, CYCLIC
     Dates: start: 2019
  3. FOLINIC ACID [Concomitant]
     Active Substance: LEUCOVORIN
     Indication: ADENOCARCINOMA
     Dosage: UNK UNK, CYCLIC
     Dates: start: 2019

REACTIONS (2)
  - Blindness [Unknown]
  - Optic neuritis [Unknown]
